FAERS Safety Report 8543312-2 (Version None)
Quarter: 2012Q3

REPORT INFORMATION
  Report Type: 
  Country: None (occurrence: None)
  Receive Date: 20120727
  Receipt Date: 20120719
  Transmission Date: 20120928
  Serious: Yes (Hospitalization, Other)
  Sender: FDA-Public Use
  Company Number: US-US-EMD SERONO, INC.-7146683

PATIENT
  Sex: Female

DRUGS (4)
  1. REBIF [Suspect]
     Indication: PRODUCT USED FOR UNKNOWN INDICATION
     Route: 058
     Dates: start: 20021010, end: 20111101
  2. IBUPROFEN [Concomitant]
     Indication: PREMEDICATION
     Route: 048
  3. REBIF [Suspect]
     Route: 058
     Dates: start: 20120201
  4. EXCEDRINE [Concomitant]
     Indication: PREMEDICATION

REACTIONS (2)
  - IMPAIRED HEALING [None]
  - COAGULOPATHY [None]
